FAERS Safety Report 7618734-4 (Version None)
Quarter: 2011Q3

REPORT INFORMATION
  Report Type: 
  Country: None (occurrence: None)
  Receive Date: 20110718
  Receipt Date: 20110708
  Transmission Date: 20111222
  Serious: Yes (Disabling)
  Sender: FDA-Public Use
  Company Number: PHHY2011US38567

PATIENT
  Sex: Female

DRUGS (11)
  1. NEXIUM [Concomitant]
     Dosage: 40 MG, QD
     Route: 048
  2. MICARDIS [Concomitant]
     Dosage: 40 MG, QD
     Route: 048
  3. BIAXIN [Concomitant]
     Dosage: 125 MG, UNK
  4. EMLA [Concomitant]
     Dosage: UNK UKN, OT
  5. PREDNISONE [Concomitant]
     Dosage: 5 MG, QD
     Route: 048
  6. AVONEX ADMINISTRATION PACK [Concomitant]
     Dosage: 30 UG, UNK
     Route: 030
  7. AMBIEN [Concomitant]
     Dosage: 10 MG, QHS
     Route: 048
  8. VALIUM [Concomitant]
     Dosage: 10 MG, QD
     Route: 048
  9. GILENYA [Suspect]
     Indication: MULTIPLE SCLEROSIS
     Dosage: 0.5 MG, QD
     Route: 048
     Dates: start: 20110330, end: 20110406
  10. HYDROCHLOROTHIAZIDE [Concomitant]
     Dosage: 50 MG, DAY
     Route: 048
  11. GABAPENTIN [Concomitant]
     Dosage: 300 MG, PRN
     Route: 048

REACTIONS (2)
  - EYE SWELLING [None]
  - CHEST DISCOMFORT [None]
